FAERS Safety Report 18585764 (Version 1)
Quarter: 2020Q4

REPORT INFORMATION
  Report Type: Spontaneous
  Country: US (occurrence: US)
  Receive Date: 20201206
  Receipt Date: 20201206
  Transmission Date: 20210114
  Serious: Yes (Life-Threatening, Disabling, Other)
  Sender: FDA-Public Use
  Company Number: None

PATIENT
  Age: 52 Year
  Sex: Female
  Weight: 42 kg

DRUGS (4)
  1. VITAMIN B-COMPLEX [Concomitant]
     Active Substance: DEXPANTHENOL\NIACINAMIDE\PYRIDOXINE HYDROCHLORIDE\RIBOFLAVIN 5^-PHOSPHATE SODIUM\THIAMINE HYDROCHLORIDE
  2. EMERGEN C [Concomitant]
     Active Substance: MINERALS\VITAMINS
  3. VITAMIN B12 [Concomitant]
     Active Substance: CYANOCOBALAMIN
  4. DOTAREM [Suspect]
     Active Substance: GADOTERATE MEGLUMINE
     Indication: MAGNETIC RESONANCE IMAGING
     Route: 042
     Dates: start: 20200205, end: 20200416

REACTIONS (17)
  - Muscular weakness [None]
  - Spinal instability [None]
  - Muscle contractions involuntary [None]
  - Urinary incontinence [None]
  - Dizziness [None]
  - Paraesthesia [None]
  - Skin discolouration [None]
  - Abdominal pain [None]
  - Dehydration [None]
  - Pain [None]
  - Myalgia [None]
  - Feeling abnormal [None]
  - Asthenia [None]
  - Weight decreased [None]
  - Headache [None]
  - Diarrhoea [None]
  - Chondrodynia [None]

NARRATIVE: CASE EVENT DATE: 20200416
